FAERS Safety Report 12515713 (Version 1)
Quarter: 2016Q2

REPORT INFORMATION
  Report Type: Spontaneous
  Country: US (occurrence: US)
  Receive Date: 20160630
  Receipt Date: 20160630
  Transmission Date: 20160815
  Serious: No
  Sender: FDA-Public Use
  Company Number: US-TRIS PHARMA, INC.-1054479

PATIENT
  Age: 44 Year
  Sex: Female
  Weight: 86.17 kg

DRUGS (2)
  1. DEXTROMETHORPHAN POLISTIREX ER OS 6 MG/ML [Suspect]
     Active Substance: DEXTROMETHORPHAN HYDROBROMIDE
     Indication: COUGH
     Dates: start: 20151128, end: 20151130
  2. GLYBURIDE. [Concomitant]
     Active Substance: GLYBURIDE
     Dates: start: 2014

REACTIONS (1)
  - Drug ineffective [None]
